FAERS Safety Report 21499095 (Version 1)
Quarter: 2022Q4

REPORT INFORMATION
  Report Type: Other
  Country: None (occurrence: US)
  Receive Date: 20221021
  Receipt Date: 20221021
  Transmission Date: 20230113
  Serious: Yes (Other)
  Sender: FDA-Public Use
  Company Number: US-Person and Covey-2134087

PATIENT
  Age: 39 Year
  Sex: Female

DRUGS (1)
  1. DHS SAL [Suspect]
     Active Substance: SALICYLIC ACID

REACTIONS (1)
  - Pruritus [Unknown]

NARRATIVE: CASE EVENT DATE: 20221017
